FAERS Safety Report 6044721-6 (Version None)
Quarter: 2009Q1

REPORT INFORMATION
  Report Type: 
  Country: None (occurrence: None)
  Receive Date: 20090120
  Receipt Date: 20090112
  Transmission Date: 20090719
  Serious: Yes (Death, Hospitalization, Other)
  Sender: FDA-Public Use
  Company Number: NZ-ROXANE LABORATORIES, INC.-2009-RO-00048RO

PATIENT
  Sex: Male

DRUGS (6)
  1. PROPRANOLOL [Suspect]
     Indication: BASEDOW'S DISEASE
  2. PROPRANOLOL [Suspect]
     Route: 042
  3. CARBIMAZOLE [Suspect]
     Indication: BASEDOW'S DISEASE
  4. CARBIMAZOLE [Suspect]
  5. ANTIBIOTICS [Suspect]
  6. HYDROCORTISONE [Suspect]
     Route: 042

REACTIONS (6)
  - CARDIAC FAILURE [None]
  - CARDIOMYOPATHY [None]
  - HYPERTHYROIDISM [None]
  - LIVER FUNCTION TEST ABNORMAL [None]
  - LOBAR PNEUMONIA [None]
  - TREATMENT NONCOMPLIANCE [None]
